FAERS Safety Report 23855867 (Version 1)
Quarter: 2024Q2

REPORT INFORMATION
  Report Type: Spontaneous
  Country: IT (occurrence: IT)
  Receive Date: 20240515
  Receipt Date: 20240515
  Transmission Date: 20240716
  Serious: Yes (Other)
  Sender: FDA-Public Use
  Company Number: IT-MYLANLABS-2024M1038634

PATIENT
  Age: 60 Year
  Sex: Male

DRUGS (2)
  1. ATAZANAVIR SULFATE [Interacting]
     Active Substance: ATAZANAVIR SULFATE
     Indication: HIV infection
     Dosage: 300 MILLIGRAM, QD (UNBOOSTED)
  2. DOLUTEGRAVIR [Concomitant]
     Active Substance: DOLUTEGRAVIR
     Indication: HIV infection
     Dosage: 50 MILLIGRAM, QD

REACTIONS (4)
  - Drug interaction [Recovered/Resolved]
  - Food interaction [Recovered/Resolved]
  - Blood bilirubin decreased [Recovered/Resolved]
  - Drug level decreased [Recovered/Resolved]
